FAERS Safety Report 9517304 (Version 2)
Quarter: 2013Q3

REPORT INFORMATION
  Report Type: Spontaneous
  Country: US (occurrence: US)
  Receive Date: 20130911
  Receipt Date: 20130924
  Transmission Date: 20140515
  Serious: No
  Sender: FDA-Public Use
  Company Number: US-ASTRAZENECA-2013SE60539

PATIENT
  Age: 77 Year
  Sex: Male
  Weight: 90.7 kg

DRUGS (4)
  1. SYMBICORT [Suspect]
     Indication: CHRONIC OBSTRUCTIVE PULMONARY DISEASE
     Dosage: 160/4.5 INHALER TWO PUFFS BID
     Route: 055
     Dates: start: 2010, end: 20130731
  2. METHOTREXATE [Concomitant]
     Indication: LARGE GRANULAR LYMPHOCYTOSIS
     Dosage: WEEK
  3. LIPITOR [Concomitant]
  4. ANOTHER MEDICATION [Concomitant]
     Indication: RESPIRATORY DISORDER

REACTIONS (4)
  - Dyspnoea [Unknown]
  - Feeling abnormal [Unknown]
  - Drug dose omission [Unknown]
  - Intentional drug misuse [Unknown]
